FAERS Safety Report 8158801-2 (Version None)
Quarter: 2012Q1

REPORT INFORMATION
  Report Type: 
  Country: None (occurrence: None)
  Receive Date: 20120223
  Receipt Date: 20120213
  Transmission Date: 20120608
  Serious: Yes (Other)
  Sender: FDA-Public Use
  Company Number: US-SANOFI-AVENTIS-2011SA075776

PATIENT
  Age: 79 Year
  Sex: Male
  Weight: 87 kg

DRUGS (6)
  1. HYDROCORTISONE [Concomitant]
     Dosage: 100 MG IN MORNING AND 50 MG IN EVENING
     Dates: start: 20111003
  2. JEVTANA KIT [Suspect]
     Route: 041
     Dates: start: 20111027, end: 20111027
  3. LASIX [Concomitant]
  4. OXYCODONE HCL [Concomitant]
     Indication: PAIN
     Dosage: EVERY 4-6 HOURS AS NEEDED
  5. PREDNISONE [Concomitant]
     Indication: CHEMOTHERAPY
     Dates: start: 20111129
  6. MS CONTIN [Concomitant]
     Indication: PAIN

REACTIONS (5)
  - CONFUSIONAL STATE [None]
  - NEUTROPENIA [None]
  - HALLUCINATION [None]
  - PNEUMONIA [None]
  - DELIRIUM [None]
